FAERS Safety Report 17091170 (Version 2)
Quarter: 2019Q4

REPORT INFORMATION
  Report Type: Spontaneous
  Country: CA (occurrence: CA)
  Receive Date: 20191129
  Receipt Date: 20191218
  Transmission Date: 20200122
  Serious: Yes (Other)
  Sender: FDA-Public Use
  Company Number: CA-ALK-ABELLO A/S-2019AA003735

PATIENT

DRUGS (4)
  1. 5 GRASS MIX (AGROSTIS GIGANTEA POLLEN\ANTHOXANTHUM ODORATUM\DACTYLIS GLOMERATA\PHLEUM PRATENSE\POA PRATENSIS) [Suspect]
     Active Substance: AGROSTIS GIGANTEA POLLEN\ANTHOXANTHUM ODORATUM\DACTYLIS GLOMERATA\PHLEUM PRATENSE\POA PRATENSIS
     Indication: PRODUCT USED FOR UNKNOWN INDICATION
     Dosage: VIAL 3, 0.5ML
     Route: 058
     Dates: start: 20190411, end: 20191028
  2. STAE BULK 555 (FELIS DOMESTICUS) [Suspect]
     Active Substance: FELIS CATUS HAIR
     Indication: PRODUCT USED FOR UNKNOWN INDICATION
     Dosage: VIAL 3, 0.5ML
     Route: 058
     Dates: start: 20190411, end: 20191028
  3. STAE BULK 225 [Suspect]
     Active Substance: PHLEUM PRATENSE POLLEN
     Indication: PRODUCT USED FOR UNKNOWN INDICATION
     Dosage: VIAL 3, 0.5ML
     Route: 058
     Dates: start: 20190411, end: 20191028
  4. STERILE DILUENT FOR ALLERGENIC EXTRACT NOS [Suspect]
     Active Substance: ALBUMIN HUMAN OR GLYCERIN OR PHENOL
     Indication: PRODUCT USED FOR UNKNOWN INDICATION
     Dosage: VIAL 3, 0.5ML
     Route: 058
     Dates: start: 20190411, end: 20191028

REACTIONS (6)
  - Product colour issue [Unknown]
  - Pruritus [Recovered/Resolved]
  - Erythema [Recovered/Resolved]
  - Injection site papule [Recovered/Resolved]
  - Swelling face [Recovered/Resolved]
  - Dyspnoea [Recovered/Resolved]

NARRATIVE: CASE EVENT DATE: 20191028
